FAERS Safety Report 6991383-7 (Version None)
Quarter: 2010Q3

REPORT INFORMATION
  Report Type: 
  Country: None (occurrence: None)
  Receive Date: 20100916
  Receipt Date: 20090818
  Transmission Date: 20110219
  Serious: No
  Sender: FDA-Public Use
  Company Number: US-WYE-H09788509

PATIENT
  Age: 81 Year
  Sex: Female
  Weight: 55.39 kg

DRUGS (4)
  1. ADVIL PM [Suspect]
     Indication: BACK PAIN
     Dosage: 2 CAPLETS DAILY AT BEDTIME
     Route: 048
     Dates: start: 20090615, end: 20090615
  2. HYZAAR [Concomitant]
  3. ADVIL LIQUI-GELS [Concomitant]
  4. COREG [Concomitant]

REACTIONS (4)
  - DISTURBANCE IN ATTENTION [None]
  - INSOMNIA [None]
  - RESTLESS LEGS SYNDROME [None]
  - RESTLESSNESS [None]
